FAERS Safety Report 5835960-5 (Version None)
Quarter: 2008Q3

REPORT INFORMATION
  Report Type: 
  Country: None (occurrence: None)
  Receive Date: 20080806
  Receipt Date: 20080728
  Transmission Date: 20090109
  Serious: Yes (Hospitalization)
  Sender: FDA-Public Use
  Company Number: PHHO2008IL09242

PATIENT
  Sex: Female
  Weight: 57 kg

DRUGS (4)
  1. BLINDED NO TREATMENT RECEIVED NOMED [Suspect]
     Indication: CARCINOID TUMOUR
     Dosage: 10MG
     Route: 048
     Dates: start: 20071119
  2. BLINDED PLACEBO COMP-PLA+ [Suspect]
     Indication: CARCINOID TUMOUR
     Dosage: 10MG
     Route: 048
     Dates: start: 20071119
  3. BLINDED RAD 666 RAD+TAB [Suspect]
     Indication: CARCINOID TUMOUR
     Dosage: 10MG
     Route: 048
     Dates: start: 20071119
  4. SANDOSTATIN LAR [Suspect]
     Indication: CARCINOID SYNDROME
     Dosage: UNK
     Route: 048

REACTIONS (3)
  - BLISTER [None]
  - OEDEMA PERIPHERAL [None]
  - SKIN INFECTION [None]
